FAERS Safety Report 18745952 (Version 1)
Quarter: 2021Q1

REPORT INFORMATION
  Report Type: Spontaneous
  Country: IN (occurrence: IN)
  Receive Date: 20210115
  Receipt Date: 20210115
  Transmission Date: 20210419
  Serious: Yes (Life-Threatening, Hospitalization)
  Sender: FDA-Public Use
  Company Number: IN-MYLANLABS-2021M1002512

PATIENT
  Age: 32 Year
  Sex: Male

DRUGS (8)
  1. ATROPINE. [Concomitant]
     Active Substance: ATROPINE
     Indication: CHEMICAL POISONING
     Dosage: UNK
     Route: 065
  2. MIDAZOLAM. [Suspect]
     Active Substance: MIDAZOLAM
     Indication: STATUS EPILEPTICUS
     Dosage: UNK
     Route: 065
  3. MAGNESIUM [Suspect]
     Active Substance: MAGNESIUM
     Indication: STATUS EPILEPTICUS
     Dosage: UNK
     Route: 065
  4. PHENYTOIN. [Suspect]
     Active Substance: PHENYTOIN
     Indication: STATUS EPILEPTICUS
     Dosage: UNK
     Route: 065
  5. PRALIDOXIME CHLORIDE. [Concomitant]
     Active Substance: PRALIDOXIME CHLORIDE
     Indication: CHEMICAL POISONING
     Dosage: UNK
     Route: 065
  6. LEVETIRACETAM. [Suspect]
     Active Substance: LEVETIRACETAM
     Indication: STATUS EPILEPTICUS
     Dosage: UNK
     Route: 065
  7. SODIUM VALPROATE [Suspect]
     Active Substance: VALPROATE SODIUM
     Indication: STATUS EPILEPTICUS
     Dosage: UNK
     Route: 065
  8. THIOPENTONE SODIUM [Suspect]
     Active Substance: THIOPENTAL SODIUM
     Indication: STATUS EPILEPTICUS
     Dosage: UNK

REACTIONS (1)
  - Drug ineffective [Unknown]
